FAERS Safety Report 13862114 (Version 2)
Quarter: 2017Q3

REPORT INFORMATION
  Report Type: Spontaneous
  Country: US (occurrence: US)
  Receive Date: 20170812
  Receipt Date: 20170915
  Transmission Date: 20171127
  Serious: Yes (Other)
  Sender: FDA-Public Use
  Company Number: US-TEVA-796406ACC

PATIENT
  Age: 43 Year
  Sex: Female
  Weight: 80.36 kg

DRUGS (4)
  1. PARAGARD T 380A [Suspect]
     Active Substance: COPPER
     Dosage: 10 YEARS
     Dates: start: 20070523
  2. LEVOXYL [Concomitant]
     Active Substance: LEVOTHYROXINE SODIUM
  3. VALACYCLOVIR [Concomitant]
     Active Substance: VALACYCLOVIR HYDROCHLORIDE
     Indication: ORAL HERPES
     Dosage: BID PRN
     Route: 048
  4. ELIQUIS [Concomitant]
     Active Substance: APIXABAN
     Dosage: 5 MILLIGRAM DAILY; BID

REACTIONS (2)
  - Embedded device [Not Recovered/Not Resolved]
  - Device breakage [Not Recovered/Not Resolved]

NARRATIVE: CASE EVENT DATE: 20170609
